FAERS Safety Report 18213745 (Version 1)
Quarter: 2020Q3

REPORT INFORMATION
  Report Type: Spontaneous
  Country: US (occurrence: US)
  Receive Date: 20200831
  Receipt Date: 20200831
  Transmission Date: 20201103
  Serious: Yes (Hospitalization)
  Sender: FDA-Public Use
  Company Number: None

PATIENT
  Age: 72 Year
  Sex: Male
  Weight: 97 kg

DRUGS (1)
  1. TRIAMTERENE (TRIAMTERENE 100MG CAP) [Suspect]
     Active Substance: TRIAMTERENE
     Indication: HYPERTENSION
     Route: 048
     Dates: start: 20200707, end: 20200801

REACTIONS (3)
  - Hepatic enzyme increased [None]
  - Jaundice [None]
  - International normalised ratio abnormal [None]

NARRATIVE: CASE EVENT DATE: 20200801
